FAERS Safety Report 4472909-4 (Version None)
Quarter: 2004Q4

REPORT INFORMATION
  Report Type: 
  Country: None (occurrence: None)
  Receive Date: 20041013
  Receipt Date: 20041005
  Transmission Date: 20050328
  Serious: Yes (Hospitalization, Other)
  Sender: FDA-Public Use
  Company Number: AU-JNJFOC-20040501168

PATIENT
  Sex: Female
  Weight: 110 kg

DRUGS (6)
  1. RISPERIDONE [Suspect]
     Route: 049
  2. RISPERIDONE [Suspect]
     Dosage: RE-STARTED AFTER DECHALLENGE
     Route: 049
  3. RISPERIDONE [Suspect]
     Dosage: STOPPED FOR A FEW DAYS FOR DECHALLENGE
     Route: 049
  4. LITHIUM CARBONATE [Suspect]
     Indication: HYPOMANIA
     Route: 049
  5. ANTITRIPTYLINE [Concomitant]
     Route: 049
  6. METFORMIN [Concomitant]
     Route: 049

REACTIONS (11)
  - ATAXIA [None]
  - CSF PRESSURE INCREASED [None]
  - HEADACHE [None]
  - HYPOMANIA [None]
  - HYPOTHYROIDISM [None]
  - INTERVERTEBRAL DISC DISORDER [None]
  - INTRACRANIAL PRESSURE INCREASED [None]
  - MAJOR DEPRESSION [None]
  - PAPILLOEDEMA [None]
  - RETINAL HAEMORRHAGE [None]
  - THERAPY NON-RESPONDER [None]
